FAERS Safety Report 6721493-0 (Version None)
Quarter: 2010Q2

REPORT INFORMATION
  Report Type: 
  Country: None (occurrence: None)
  Receive Date: 20100510
  Receipt Date: 20100426
  Transmission Date: 20101027
  Serious: Yes (Hospitalization)
  Sender: FDA-Public Use
  Company Number: 1-22388792

PATIENT
  Age: 29 Year
  Sex: Male

DRUGS (1)
  1. ZONISAMIDE [Suspect]
     Indication: TEMPORAL LOBE EPILEPSY
     Dosage: 300 MG, ORAL
     Route: 048

REACTIONS (10)
  - DECREASED APPETITE [None]
  - DRUG RASH WITH EOSINOPHILIA AND SYSTEMIC SYMPTOMS [None]
  - HAEMODIALYSIS [None]
  - HEART RATE DECREASED [None]
  - HUMAN HERPESVIRUS 6 INFECTION [None]
  - HYPOGAMMAGLOBULINAEMIA [None]
  - OROPHARYNGEAL PAIN [None]
  - RENAL FAILURE ACUTE [None]
  - SOMNOLENCE [None]
  - SPLENOMEGALY [None]
